FAERS Safety Report 13648327 (Version 1)
Quarter: 2017Q2

REPORT INFORMATION
  Report Type: Spontaneous
  Country: GB (occurrence: GB)
  Receive Date: 20170613
  Receipt Date: 20170613
  Transmission Date: 20170830
  Serious: Yes (Other)
  Sender: FDA-Public Use
  Company Number: GB-BAYER-2017-086902

PATIENT
  Age: 30 Year
  Sex: Female

DRUGS (2)
  1. AVELOX [Suspect]
     Active Substance: MOXIFLOXACIN HYDROCHLORIDE
     Indication: BACTERIAL INFECTION
     Dosage: 400 MG, QD
     Route: 048
     Dates: start: 20170425, end: 20170428
  2. OFLOXACIN. [Concomitant]
     Active Substance: OFLOXACIN
     Indication: ENDOMETRITIS
     Dosage: 200 MG, BID
     Dates: start: 20170414, end: 20170421

REACTIONS (14)
  - Nasal oedema [Not Recovered/Not Resolved]
  - Abdominal pain lower [Not Recovered/Not Resolved]
  - Nasal congestion [Not Recovered/Not Resolved]
  - Nasal congestion [Not Recovered/Not Resolved]
  - Dyspnoea [Not Recovered/Not Resolved]
  - Lung disorder [Not Recovered/Not Resolved]
  - Nasal congestion [Not Recovered/Not Resolved]
  - Chest pain [Not Recovered/Not Resolved]
  - Drug ineffective [None]
  - Oropharyngeal pain [Not Recovered/Not Resolved]
  - Oropharyngeal pain [Not Recovered/Not Resolved]
  - Respiratory tract infection [Not Recovered/Not Resolved]
  - Swelling [Not Recovered/Not Resolved]
  - Oedema [None]

NARRATIVE: CASE EVENT DATE: 20170425
